FAERS Safety Report 4609733-5 (Version None)
Quarter: 2005Q1

REPORT INFORMATION
  Report Type: 
  Country: None (occurrence: None)
  Receive Date: 20050314
  Receipt Date: 20040816
  Transmission Date: 20050727
  Serious: Yes (Life-Threatening, Hospitalization, Disabling)
  Sender: FDA-Public Use
  Company Number: 8633

PATIENT
  Age: 55 Year
  Sex: Male

DRUGS (12)
  1. CEFTRIAXONE [Suspect]
     Indication: PNEUMONIA ASPIRATION
     Dosage: 2 G QD, IV
     Route: 042
     Dates: start: 20040720, end: 20040730
  2. ACYCLOVIR [Suspect]
     Indication: MENINGITIS VIRAL
     Dosage: 750 MG TID, IV
     Route: 042
     Dates: start: 20040721, end: 20040802
  3. METRONIDAZOLE [Concomitant]
  4. ZINC [Concomitant]
  5. PANTOPRAZOLE [Concomitant]
  6. PROPOFOL [Concomitant]
  7. ALFENTANIL [Concomitant]
  8. DOBUTAMINE HCL [Concomitant]
  9. NORADRENALINE [Concomitant]
  10. DESMOPRESSIN [Concomitant]
  11. PARACETAMOL [Concomitant]
  12. SELENIUM TRACE METAL ADDITIVE [Concomitant]

REACTIONS (1)
  - HEPATIC FAILURE [None]
